FAERS Safety Report 7572025-9 (Version None)
Quarter: 2011Q2

REPORT INFORMATION
  Report Type: 
  Country: None (occurrence: None)
  Receive Date: 20110624
  Receipt Date: 20110616
  Transmission Date: 20111010
  Serious: Yes (Hospitalization)
  Sender: FDA-Public Use
  Company Number: JP-PFIZER INC-2011125081

PATIENT
  Age: 74 Year
  Sex: Male
  Weight: 54 kg

DRUGS (4)
  1. OLMESARTAN MEDOXOMIL [Concomitant]
     Indication: HYPERTENSION
     Dosage: UNK
     Route: 048
  2. CARVEDILOL [Concomitant]
     Indication: HYPERTENSION
     Dosage: UNK
     Route: 048
  3. ATORVASTATIN CALCIUM [Suspect]
     Indication: HYPERCHOLESTEROLAEMIA
     Dosage: 10 MG, 1X/DAY
     Route: 048
     Dates: start: 20101105
  4. NORVASC [Concomitant]
     Indication: HYPERTENSION
     Dosage: UNK
     Route: 048

REACTIONS (2)
  - PNEUMONIA [None]
  - ANGINA PECTORIS [None]
